FAERS Safety Report 12889268 (Version 1)
Quarter: 2016Q4

REPORT INFORMATION
  Report Type: Spontaneous
  Country: US (occurrence: US)
  Receive Date: 20161027
  Receipt Date: 20161027
  Transmission Date: 20170207
  Serious: Yes (Other)
  Sender: FDA-Public Use
  Company Number: US-STANDARD HOMEOPATHIC COMPANY-1058951

PATIENT
  Age: 18 Month
  Sex: Male

DRUGS (1)
  1. BABY TEETHING (HYLAND HOMEOPATHIC) [Suspect]
     Active Substance: HOMEOPATHICS
     Indication: TEETHING
     Route: 048
     Dates: start: 2015, end: 201603

REACTIONS (6)
  - Cerebral cyst [None]
  - Bite [None]
  - Screaming [None]
  - Head banging [None]
  - Seizure [None]
  - Intentional self-injury [None]

NARRATIVE: CASE EVENT DATE: 2015
